FAERS Safety Report 7465816-6 (Version None)
Quarter: 2011Q2

REPORT INFORMATION
  Report Type: 
  Country: None (occurrence: None)
  Receive Date: 20110509
  Receipt Date: 20100406
  Transmission Date: 20111010
  Serious: No
  Sender: FDA-Public Use
  Company Number: US-ALEXION-A201000322

PATIENT
  Sex: Male

DRUGS (7)
  1. PREDNISONE [Concomitant]
     Indication: PAROXYSMAL NOCTURNAL HAEMOGLOBINURIA
     Dosage: 5 MG, UNK
     Route: 048
     Dates: end: 20100402
  2. IRON [Concomitant]
     Dosage: UNK
     Route: 048
  3. CALCIUM [Concomitant]
  4. FOLIC ACID [Concomitant]
     Indication: PAROXYSMAL NOCTURNAL HAEMOGLOBINURIA
     Dosage: UNK
     Route: 048
  5. SOLIRIS [Suspect]
     Indication: PAROXYSMAL NOCTURNAL HAEMOGLOBINURIA
     Dosage: 600 MG, UNK
     Route: 042
     Dates: start: 20100305, end: 20100326
  6. VITAMINS                           /90003601/ [Concomitant]
     Dosage: UNK
     Route: 048
  7. SOLIRIS [Suspect]
     Dosage: 900 MG, UNK
     Route: 042
     Dates: start: 20100402

REACTIONS (7)
  - BONE PAIN [None]
  - OROPHARYNGEAL PAIN [None]
  - BACK PAIN [None]
  - PAIN [None]
  - INFLUENZA [None]
  - ARTHRALGIA [None]
  - NASAL CONGESTION [None]
